FAERS Safety Report 6461543-2 (Version None)
Quarter: 2009Q4

REPORT INFORMATION
  Report Type: 
  Country: None (occurrence: None)
  Receive Date: 20091123
  Receipt Date: 20091109
  Transmission Date: 20100525
  Serious: Yes (Hospitalization)
  Sender: FDA-Public Use
  Company Number: 1-20497511

PATIENT
  Age: 51 Year
  Sex: Female
  Weight: 81.6475 kg

DRUGS (5)
  1. POTASSIUM CITRATE [Suspect]
     Indication: CYSTINURIA
     Dosage: UP TO 6480 MG, TWICE DAILY, ORAL
     Route: 048
     Dates: start: 20070101
  2. HYDROCHLOROTHIAZIDE [Concomitant]
  3. FISH OIL [Concomitant]
  4. CHILDREN'S VITAMINS [Concomitant]
  5. OCCASIONAL CALCIUM  OR CALCIUM WITH VITAMIN D [Concomitant]

REACTIONS (3)
  - INFLUENZA [None]
  - KIDNEY INFECTION [None]
  - NEPHROLITHIASIS [None]
